FAERS Safety Report 7514532-0 (Version None)
Quarter: 2011Q2

REPORT INFORMATION
  Report Type: 
  Country: None (occurrence: None)
  Receive Date: 20110601
  Receipt Date: 20101209
  Transmission Date: 20111010
  Serious: No
  Sender: FDA-Public Use
  Company Number: US-BAYER-2010-007321

PATIENT
  Age: 30 Year
  Sex: Female
  Weight: 180 kg

DRUGS (2)
  1. ULTRAVIST 150 [Suspect]
     Indication: COMPUTERISED TOMOGRAM ABDOMEN
     Dosage: 122 ML, ONCE
     Route: 042
     Dates: start: 20101209, end: 20101209
  2. ALEVE (CAPLET) [Concomitant]
     Dosage: UNK UNK, PRN

REACTIONS (2)
  - NAUSEA [None]
  - VOMITING [None]
